FAERS Safety Report 4909436-3 (Version None)
Quarter: 2006Q1

REPORT INFORMATION
  Report Type: 
  Country: None (occurrence: None)
  Receive Date: 20060209
  Receipt Date: 20060209
  Transmission Date: 20060701
  Serious: Yes (Other)
  Sender: FDA-Public Use
  Company Number: None

PATIENT
  Age: 35 Year
  Sex: Female
  Weight: 47.6277 kg

DRUGS (1)
  1. NEXIUM [Suspect]
     Indication: GASTROINTESTINAL HAEMORRHAGE
     Dosage: 1 TABLET DQ PO
     Route: 048
     Dates: start: 20060131, end: 20060207

REACTIONS (2)
  - BACK PAIN [None]
  - MENORRHAGIA [None]
